FAERS Safety Report 5989820-X (Version None)
Quarter: 2008Q4

REPORT INFORMATION
  Report Type: 
  Country: None (occurrence: None)
  Receive Date: 20081210
  Receipt Date: 20080830
  Transmission Date: 20090506
  Serious: No
  Sender: FDA-Public Use
  Company Number: US-AMGEN-KDL305130

PATIENT
  Sex: Female

DRUGS (3)
  1. ENBREL [Suspect]
     Indication: RHEUMATOID ARTHRITIS
     Route: 058
     Dates: start: 20070301
  2. HUMIRA [Concomitant]
  3. ARAVA [Concomitant]
     Dates: start: 20080501

REACTIONS (2)
  - HEAT RASH [None]
  - URTICARIA [None]
